FAERS Safety Report 24410310 (Version 1)
Quarter: 2024Q4

REPORT INFORMATION
  Report Type: Spontaneous
  Country: CN (occurrence: CN)
  Receive Date: 20241008
  Receipt Date: 20241008
  Transmission Date: 20250114
  Serious: Yes (Hospitalization, Other)
  Sender: RANBAXY
  Company Number: CN-SUN PHARMACEUTICAL INDUSTRIES LTD-2024R1-471726

PATIENT
  Age: 52 Year
  Sex: Male
  Weight: 55 kg

DRUGS (4)
  1. OXALIPLATIN [Suspect]
     Active Substance: OXALIPLATIN
     Indication: Chemotherapy
     Dosage: 225 MILLIGRAMON DAY 1 EVERY 3 WEEKS
     Route: 065
     Dates: start: 20210518, end: 20210814
  2. RIVOCERANIB MESYLATE [Suspect]
     Active Substance: RIVOCERANIB MESYLATE
     Indication: Chemotherapy
     Dosage: 0.25 MILLIGRAM, DAILY/FROM DAY 1 TO 21 EVERY 3 WEEKS
     Route: 065
     Dates: start: 20210518, end: 20210814
  3. CAMRELIZUMAB [Suspect]
     Active Substance: CAMRELIZUMAB
     Indication: Chemotherapy
     Dosage: 200 MILLIGRAM/DAY 1 EVERY 3 WEEKS
     Route: 065
     Dates: start: 20210518, end: 20210814
  4. TIGATUZUMAB [Suspect]
     Active Substance: TIGATUZUMAB
     Indication: Chemotherapy
     Dosage: UNK
     Route: 065
     Dates: start: 20210518, end: 20210814

REACTIONS (11)
  - Therapy partial responder [Unknown]
  - Wound dehiscence [Unknown]
  - Thrombocytopenia [Unknown]
  - Blood thyroid stimulating hormone increased [Unknown]
  - Thyroxine decreased [Unknown]
  - Reactive capillary endothelial proliferation [Unknown]
  - Dyspepsia [Unknown]
  - Fatigue [Unknown]
  - Epistaxis [Unknown]
  - Oropharyngeal pain [Unknown]
  - Myelosuppression [Unknown]
